FAERS Safety Report 6084299-4 (Version None)
Quarter: 2009Q1

REPORT INFORMATION
  Report Type: 
  Country: None (occurrence: None)
  Receive Date: 20090217
  Receipt Date: 20090217
  Transmission Date: 20090719
  Serious: Yes (Hospitalization)
  Sender: FDA-Public Use
  Company Number: None

PATIENT
  Age: 57 Year
  Sex: Male
  Weight: 58.6 kg

DRUGS (8)
  1. OLANZAPINE [Suspect]
     Indication: BIPOLAR DISORDER
     Dosage: 30MG PM AT BEDTIME
     Dates: start: 20051001
  2. PREDNISONE [Concomitant]
  3. BENADRYL [Concomitant]
  4. ALBUTEROL/LPRATROPIUM BROMIDE [Concomitant]
  5. TRIAMCINOLONE [Concomitant]
  6. NICOTINE [Concomitant]
  7. PAROXETINE HCL [Concomitant]
  8. OMEPRAZOLE [Concomitant]

REACTIONS (7)
  - BRONCHIAL HYPERREACTIVITY [None]
  - BRONCHIECTASIS [None]
  - BRONCHOPULMONARY ASPERGILLOSIS [None]
  - CHEST DISCOMFORT [None]
  - CONDITION AGGRAVATED [None]
  - METABOLIC DISORDER [None]
  - PSEUDOMONAS INFECTION [None]
